FAERS Safety Report 18419361 (Version 2)
Quarter: 2020Q4

REPORT INFORMATION
  Report Type: Spontaneous
  Country: EG (occurrence: EG)
  Receive Date: 20201023
  Receipt Date: 20201130
  Transmission Date: 20210114
  Serious: Yes (Death, Life-Threatening, Other)
  Sender: FDA-Public Use
  Company Number: EG-SA-2020SA298501

PATIENT

DRUGS (1)
  1. CEREZYME [Suspect]
     Active Substance: IMIGLUCERASE
     Indication: GAUCHER^S DISEASE TYPE I
     Dosage: 40 U/KG (5 VIALS), QOW
     Route: 042
     Dates: start: 2016, end: 201803

REACTIONS (2)
  - Cardiac valve replacement complication [Fatal]
  - Rheumatic heart disease [Unknown]
